FAERS Safety Report 6121292-7 (Version None)
Quarter: 2009Q1

REPORT INFORMATION
  Report Type: 
  Country: None (occurrence: None)
  Receive Date: 20090312
  Receipt Date: 20090312
  Transmission Date: 20090719
  Serious: Yes (Life-Threatening, Other)
  Sender: FDA-Public Use
  Company Number: None

PATIENT
  Age: 59 Year
  Sex: Male
  Weight: 98 kg

DRUGS (1)
  1. TIGERCYCLINE 50MG/5ML WYETH [Suspect]
     Indication: CELLULITIS
     Dosage: 50MG Q12HOURS IV
     Route: 042
     Dates: start: 20090126, end: 20090225

REACTIONS (1)
  - HYPERBILIRUBINAEMIA [None]
